FAERS Safety Report 6149127-7 (Version None)
Quarter: 2009Q2

REPORT INFORMATION
  Report Type: 
  Country: None (occurrence: None)
  Receive Date: 20090409
  Receipt Date: 20090403
  Transmission Date: 20091009
  Serious: Yes (Hospitalization)
  Sender: FDA-Public Use
  Company Number: ES-WYE-H08815409

PATIENT
  Sex: Male
  Weight: 96 kg

DRUGS (3)
  1. TEMSIROLIMUS [Suspect]
     Indication: RENAL CELL CARCINOMA
     Route: 042
     Dates: start: 20081223, end: 20090101
  2. TEMSIROLIMUS [Suspect]
     Dosage: UNKNOWN
     Route: 042
     Dates: start: 20090331
  3. BEVACIZUMAB [Suspect]
     Indication: RENAL CELL CARCINOMA
     Dosage: UNKNOWN
     Route: 042

REACTIONS (1)
  - ANAL ABSCESS [None]
